FAERS Safety Report 6028683-3 (Version None)
Quarter: 2009Q1

REPORT INFORMATION
  Report Type: 
  Country: None (occurrence: None)
  Receive Date: 20090106
  Receipt Date: 20081223
  Transmission Date: 20090719
  Serious: Yes (Other)
  Sender: FDA-Public Use
  Company Number: AU-PFIZER INC-2008152173

PATIENT

DRUGS (2)
  1. LIPITOR [Suspect]
     Indication: CEREBROVASCULAR ACCIDENT
  2. LIPITOR [Suspect]

REACTIONS (3)
  - COUGH [None]
  - MUSCULAR WEAKNESS [None]
  - STENT PLACEMENT [None]
